FAERS Safety Report 17057890 (Version 1)
Quarter: 2019Q4

REPORT INFORMATION
  Report Type: Spontaneous
  Country: US (occurrence: US)
  Receive Date: 20191120
  Receipt Date: 20191120
  Transmission Date: 20200122
  Serious: Yes (Hospitalization)
  Sender: FDA-Public Use
  Company Number: None

PATIENT
  Sex: Female

DRUGS (6)
  1. LEVOTHYROXIN [Concomitant]
     Active Substance: LEVOTHYROXINE
  2. XELJANZ [Suspect]
     Active Substance: TOFACITINIB CITRATE
     Indication: SKIN DISORDER
     Route: 048
     Dates: start: 20190129
  3. GAMMAGARD [Concomitant]
     Active Substance: HUMAN IMMUNOGLOBULIN G
  4. XELJANZ [Suspect]
     Active Substance: TOFACITINIB CITRATE
     Indication: POLYMYOSITIS
     Route: 048
     Dates: start: 20190129
  5. VITAMIN D [Concomitant]
     Active Substance: VITAMIN D NOS
  6. PREDNISONE. [Concomitant]
     Active Substance: PREDNISONE

REACTIONS (1)
  - Transient ischaemic attack [None]
